FAERS Safety Report 7640351-0 (Version None)
Quarter: 2011Q3

REPORT INFORMATION
  Report Type: 
  Country: None (occurrence: None)
  Receive Date: 20110728
  Receipt Date: 20081107
  Transmission Date: 20111222
  Serious: Yes (Other)
  Sender: FDA-Public Use
  Company Number: US-BAYER-200835113NA

PATIENT
  Age: 52 Year
  Sex: Female
  Weight: 74.83 kg

DRUGS (18)
  1. GADOLINIUM IN UNSPECIFIED DRUG [Suspect]
     Dosage: UNK
     Dates: start: 20070503
  2. PREDNISONE [Concomitant]
     Dosage: UNK
     Dates: start: 20061101
  3. SODIUM BICARBONATE [Concomitant]
     Dosage: UNK
     Dates: start: 20070401
  4. CLONIDINE [Concomitant]
     Dosage: UNK
     Dates: start: 20070401
  5. NORVASC [Concomitant]
     Dosage: UNK
     Dates: start: 20070401
  6. MEPROZINE [Concomitant]
     Indication: PAIN
     Dosage: UNK
     Dates: start: 19850101
  7. NIFEREX [Concomitant]
     Dosage: UNK
     Dates: start: 20070401
  8. METOLAZONE [Concomitant]
  9. PHOSLO [Concomitant]
     Dosage: UNK
     Dates: start: 20070401
  10. MAGNEVIST [Suspect]
     Indication: NUCLEAR MAGNETIC RESONANCE IMAGING
     Dosage: 30 ML, UNK
     Dates: start: 20040824, end: 20040824
  11. CARDIZEM [Concomitant]
     Indication: BLOOD PRESSURE ABNORMAL
     Dosage: UNK
     Dates: start: 20060101
  12. PROCRIT [Concomitant]
     Dosage: UNK
     Dates: start: 20070401
  13. CALCITRIOL [Concomitant]
     Dosage: UNK
     Dates: start: 20070401
  14. MAGNEVIST [Suspect]
     Dosage: 30 ML
     Route: 042
     Dates: start: 20070112, end: 20070112
  15. LASIX [Concomitant]
     Dosage: UNK
     Dates: start: 20040304
  16. MICRO-K [Concomitant]
     Dosage: UNK
     Dates: start: 20070401
  17. MAGNEVIST [Suspect]
     Indication: NUCLEAR MAGNETIC RESONANCE IMAGING BRAIN
     Dosage: 30 ML
     Dates: start: 20060620, end: 20060620
  18. GADOLINIUM IN UNSPECIFIED DRUG [Suspect]
     Indication: NUCLEAR MAGNETIC RESONANCE IMAGING BRAIN
     Dosage: UNK
     Dates: start: 20040316, end: 20040316

REACTIONS (13)
  - SKIN DISORDER [None]
  - ALOPECIA [None]
  - SKIN HYPERTROPHY [None]
  - SKIN PLAQUE [None]
  - DERMAL CYST [None]
  - INJURY [None]
  - ANHEDONIA [None]
  - NEPHROGENIC SYSTEMIC FIBROSIS [None]
  - GENERAL PHYSICAL HEALTH DETERIORATION [None]
  - PAIN [None]
  - SCAR [None]
  - ANXIETY [None]
  - EMOTIONAL DISTRESS [None]
